FAERS Safety Report 5355250-7 (Version None)
Quarter: 2007Q2

REPORT INFORMATION
  Report Type: 
  Country: None (occurrence: None)
  Receive Date: 20070601
  Receipt Date: 20070521
  Transmission Date: 20071010
  Serious: Yes (Life-Threatening)
  Sender: FDA-Public Use
  Company Number: THYM-11422

PATIENT
  Age: 8 Month
  Sex: Male
  Weight: 6 kg

DRUGS (4)
  1. THYMOGLOBULIN [Suspect]
     Indication: STEM CELL TRANSPLANT
     Dosage: 2.5 MG/KG QD IV
     Route: 042
     Dates: start: 20070502, end: 20070503
  2. BUSULFAN [Suspect]
     Indication: ACUTE MYELOID LEUKAEMIA
     Dates: start: 20070502, end: 20070503
  3. SOLU-CORTEF [Concomitant]
  4. VENA [Concomitant]

REACTIONS (3)
  - MULTI-ORGAN DISORDER [None]
  - PULMONARY OEDEMA [None]
  - SHOCK [None]
